FAERS Safety Report 5048845-1 (Version None)
Quarter: 2006Q3

REPORT INFORMATION
  Report Type: 
  Country: None (occurrence: None)
  Receive Date: 20060706
  Receipt Date: 20060620
  Transmission Date: 20061208
  Serious: Yes (Hospitalization)
  Sender: FDA-Public Use
  Company Number: A-US2006-12524

PATIENT
  Age: 35 Year
  Sex: Female
  Weight: 97 kg

DRUGS (1)
  1. TRACLEER [Suspect]
     Indication: PULMONARY HYPERTENSION
     Dosage: 62.5 MG, BID, ORAL
     Route: 048
     Dates: start: 20060513, end: 20060616

REACTIONS (2)
  - ACUTE PULMONARY OEDEMA [None]
  - RIGHT VENTRICULAR FAILURE [None]
